FAERS Safety Report 9129934 (Version 1)
Quarter: 2013Q1

REPORT INFORMATION
  Report Type: Spontaneous
  Country: JP (occurrence: JP)
  Receive Date: 20130228
  Receipt Date: 20130228
  Transmission Date: 20140127
  Serious: Yes (Other)
  Sender: FDA-Public Use
  Company Number: CHNY2013JP000708

PATIENT
  Sex: Female

DRUGS (1)
  1. NICOTINELL TTS [Suspect]
     Dosage: 35 MG, QD
     Route: 062
     Dates: start: 20130224

REACTIONS (5)
  - Feeling abnormal [Recovered/Resolved]
  - Pallor [Recovered/Resolved]
  - Blood pressure increased [Recovered/Resolved]
  - Palpitations [Recovered/Resolved]
  - Accidental exposure to product [Unknown]
